FAERS Safety Report 23201113 (Version 1)
Quarter: 2023Q4

REPORT INFORMATION
  Report Type: Spontaneous
  Country: DE (occurrence: DE)
  Receive Date: 20231118
  Receipt Date: 20231118
  Transmission Date: 20240110
  Serious: Yes (Other)
  Sender: FDA-Public Use
  Company Number: DE-EMBRYOTOX-202209218

PATIENT
  Age: 1 Day
  Sex: Female
  Weight: 2.49 kg

DRUGS (3)
  1. ESCITALOPRAM [Suspect]
     Active Substance: ESCITALOPRAM OXALATE
     Indication: Depression
     Dosage: 20 [MG/D ]/ DOSAGE 20 MG/D, DISCONTINUED AT GW 5.6, RESTARTED AROUND GW 18.2 WITH 10 MG/D,DURATION:2
     Dates: start: 20220425, end: 20230127
  2. BOOSTRIX [Concomitant]
     Active Substance: TETANUS TOXOID, REDUCED DIPHTHERIA TOXOID AND ACELLULAR PERTUSSIS VACCINE, ADSORBED ANTIGENS
     Indication: Immunisation
     Dates: start: 20221201, end: 20221201
  3. Comirnaty (BioNTech/Pfizer) [Concomitant]
     Indication: COVID-19 immunisation
     Dosage: 15 MICROGRAM DAILY; 15 [MCG/D ]
     Dates: start: 20221103, end: 20221103

REACTIONS (3)
  - Small for dates baby [Recovered/Resolved]
  - Microcephaly [Recovered/Resolved]
  - Foetal exposure during pregnancy [Unknown]

NARRATIVE: CASE EVENT DATE: 20230101
